FAERS Safety Report 6340735-7 (Version None)
Quarter: 2009Q3

REPORT INFORMATION
  Report Type: 
  Country: None (occurrence: None)
  Receive Date: 20090904
  Receipt Date: 20090827
  Transmission Date: 20100115
  Serious: Yes (Hospitalization)
  Sender: FDA-Public Use
  Company Number: CA-JNJFOC-20090808793

PATIENT
  Age: 72 Year
  Sex: Female

DRUGS (3)
  1. TRAMACET [Suspect]
     Indication: BACK PAIN
     Dosage: 1 TABLET EVERY 4-6 HOURS
     Route: 048
  2. NITRO SPRAY [Concomitant]
  3. STEROIDS NOS [Concomitant]

REACTIONS (5)
  - ANGINA PECTORIS [None]
  - HEADACHE [None]
  - NAUSEA [None]
  - PARAESTHESIA [None]
  - VOMITING [None]
